FAERS Safety Report 21635716 (Version 1)
Quarter: 2022Q4

REPORT INFORMATION
  Report Type: Spontaneous
  Country: GB (occurrence: None)
  Receive Date: 20221123
  Receipt Date: 20221123
  Transmission Date: 20230112
  Serious: Yes (Death, Hospitalization)
  Sender: FDA-Public Use
  Company Number: GB-ROCHE-3221508

PATIENT
  Age: 58 Year
  Sex: Female

DRUGS (8)
  1. CAPECITABINE [Suspect]
     Active Substance: CAPECITABINE
     Indication: Product used for unknown indication
     Route: 048
  2. DOCETAXEL [Suspect]
     Active Substance: DOCETAXEL
     Indication: Product used for unknown indication
     Route: 065
  3. ERIBULIN MESYLATE [Suspect]
     Active Substance: ERIBULIN MESYLATE
     Indication: Product used for unknown indication
     Route: 065
  4. NERATINIB [Suspect]
     Active Substance: NERATINIB
     Indication: Product used for unknown indication
     Route: 065
  5. PERTUZUMAB [Suspect]
     Active Substance: PERTUZUMAB
     Indication: Product used for unknown indication
     Route: 065
  6. ADO-TRASTUZUMAB EMTANSINE [Suspect]
     Active Substance: ADO-TRASTUZUMAB EMTANSINE
     Indication: Product used for unknown indication
     Route: 065
  7. TRASTUZUMAB [Suspect]
     Active Substance: TRASTUZUMAB
     Indication: Product used for unknown indication
     Route: 065
  8. VINORELBINE TARTRATE [Suspect]
     Active Substance: VINORELBINE TARTRATE
     Indication: Product used for unknown indication
     Route: 065

REACTIONS (31)
  - Mucosal inflammation [Fatal]
  - Thrombocytopenia [Fatal]
  - Pyrexia [Fatal]
  - Nausea [Fatal]
  - Odynophagia [Fatal]
  - Palpitations [Fatal]
  - Fatigue [Fatal]
  - Diarrhoea [Fatal]
  - Fatigue [Fatal]
  - Intentional product misuse [Fatal]
  - Rash pruritic [Fatal]
  - Pancytopenia [Fatal]
  - Colitis [Fatal]
  - Alopecia [Fatal]
  - Weight decreased [Fatal]
  - Off label use [Fatal]
  - Decreased appetite [Fatal]
  - Neuropathy peripheral [Fatal]
  - Tremor [Fatal]
  - Disease progression [Fatal]
  - Dysphonia [Fatal]
  - Dyspepsia [Fatal]
  - Condition aggravated [Fatal]
  - Hypoaesthesia [Fatal]
  - Product use issue [Fatal]
  - Lethargy [Fatal]
  - Hyperchlorhydria [Fatal]
  - Cough [Fatal]
  - Throat irritation [Fatal]
  - Folate deficiency [Fatal]
  - Neutropenia [Fatal]
